FAERS Safety Report 8791311 (Version 1)
Quarter: 2012Q4

REPORT INFORMATION
  Report Type: Spontaneous
  Country: US (occurrence: None)
  Receive Date: 20120911
  Receipt Date: 20120911
  Transmission Date: 20130627
  Serious: Yes (Hospitalization, Other)
  Sender: FDA-Public Use
  Company Number: 2012P1055857

PATIENT
  Age: 21 Year
  Sex: Female

DRUGS (2)
  1. MINOCYCLINE [Suspect]
     Indication: ACNE
  2. ORTHO-TRI-CYCLEN [Concomitant]

REACTIONS (18)
  - Polyarteritis nodosa [None]
  - Hypertension [None]
  - Pharyngitis [None]
  - Headache [None]
  - Sinus tachycardia [None]
  - Blood sodium decreased [None]
  - Blood potassium decreased [None]
  - Blood chloride decreased [None]
  - Blood bicarbonate increased [None]
  - Ejection fraction decreased [None]
  - Proteinuria [None]
  - Aneurysm [None]
  - Renal disorder [None]
  - Cardiac disorder [None]
  - Intestinal ischaemia [None]
  - Malabsorption [None]
  - Hypophagia [None]
  - Weight decreased [None]
